APPROVED DRUG PRODUCT: EPTIFIBATIDE
Active Ingredient: EPTIFIBATIDE
Strength: 2MG/ML
Dosage Form/Route: INJECTABLE;INJECTION
Application: A090854 | Product #001 | TE Code: AP
Applicant: TEVA PHARMACEUTICALS USA
Approved: Jun 12, 2015 | RLD: No | RS: No | Type: RX